FAERS Safety Report 15571975 (Version 2)
Quarter: 2019Q4

REPORT INFORMATION
  Report Type: Report from Study
  Country: US (occurrence: US)
  Receive Date: 20181031
  Receipt Date: 20191126
  Transmission Date: 20200122
  Serious: No
  Sender: FDA-Public Use
  Company Number: PHEH2018US045407

PATIENT
  Age: 64 Year
  Sex: Male

DRUGS (1)
  1. COSENTYX [Suspect]
     Active Substance: SECUKINUMAB
     Indication: PSORIASIS
     Dosage: 300 MG, QMO
     Route: 058

REACTIONS (4)
  - Hypersensitivity [Unknown]
  - Arthralgia [Not Recovered/Not Resolved]
  - Gait inability [Not Recovered/Not Resolved]
  - Arthritis [Not Recovered/Not Resolved]
